FAERS Safety Report 6691501-4 (Version None)
Quarter: 2010Q2

REPORT INFORMATION
  Report Type: 
  Country: None (occurrence: None)
  Receive Date: 20100422
  Receipt Date: 20100407
  Transmission Date: 20101027
  Serious: Yes (Other)
  Sender: FDA-Public Use
  Company Number: MX-JNJCH-2010009333

PATIENT
  Sex: Female

DRUGS (2)
  1. LOMOTIL [Suspect]
     Indication: DIARRHOEA
     Route: 048
     Dates: start: 20100405, end: 20100405
  2. METRONIDAZOLE [Concomitant]
     Indication: DIARRHOEA
     Dosage: TEXT:UNSPECIFIED
     Route: 048

REACTIONS (1)
  - HAEMATOCHEZIA [None]
